FAERS Safety Report 7216498-X (Version None)
Quarter: 2011Q1

REPORT INFORMATION
  Report Type: 
  Country: None (occurrence: None)
  Receive Date: 20110107
  Receipt Date: 20101230
  Transmission Date: 20110831
  Serious: Yes (Hospitalization, Other)
  Sender: FDA-Public Use
  Company Number: PHHY2010DE70153

PATIENT
  Sex: Female
  Weight: 65 kg

DRUGS (1)
  1. ZOMETA [Suspect]
     Indication: METASTASES TO BONE
     Dosage: 4 MG/5ML EVERY 3 TO 4 WEEKS
     Route: 042
     Dates: start: 20070530, end: 20091111

REACTIONS (1)
  - OSTEONECROSIS OF JAW [None]
